FAERS Safety Report 9801166 (Version 1)
Quarter: 2014Q1

REPORT INFORMATION
  Report Type: Spontaneous
  Country: US (occurrence: US)
  Receive Date: 20140107
  Receipt Date: 20140107
  Transmission Date: 20141002
  Serious: No
  Sender: FDA-Public Use
  Company Number: US-009507513-1312USA012640

PATIENT
  Age: 63 Year
  Sex: Female

DRUGS (1)
  1. VYTORIN [Suspect]
     Indication: BLOOD CHOLESTEROL
     Dosage: 10/20 MG, ONCE A DAY AT NIGHTTIME
     Route: 048
     Dates: end: 20131223

REACTIONS (6)
  - Hypotension [Unknown]
  - Gastric disorder [Unknown]
  - Varicose vein [Unknown]
  - Blood glucose increased [Unknown]
  - Muscle spasms [Unknown]
  - Malaise [Unknown]
